FAERS Safety Report 9157421 (Version 1)
Quarter: 2013Q1

REPORT INFORMATION
  Report Type: Spontaneous
  Country: US (occurrence: None)
  Receive Date: 20130211
  Receipt Date: 20130211
  Transmission Date: 20140127
  Serious: No
  Sender: FDA-Public Use
  Company Number: 1301UKR012403

PATIENT
  Age: 72 Year
  Sex: Female

DRUGS (1)
  1. CEFTIBUTEN [Suspect]
     Indication: TRACHEOBRONCHITIS
     Route: 048

REACTIONS (1)
  - No therapeutic response [None]
